FAERS Safety Report 6729904-1 (Version None)
Quarter: 2010Q2

REPORT INFORMATION
  Report Type: 
  Country: None (occurrence: None)
  Receive Date: 20100518
  Receipt Date: 20100503
  Transmission Date: 20101027
  Serious: Yes (Hospitalization)
  Sender: FDA-Public Use
  Company Number: US-CELGENEUS-163-21880-10041205

PATIENT
  Sex: Female

DRUGS (2)
  1. REVLIMID [Suspect]
     Indication: MULTIPLE MYELOMA
     Route: 048
     Dates: start: 20091204
  2. REVLIMID [Suspect]
     Route: 048
     Dates: start: 20100301, end: 20100323

REACTIONS (2)
  - MYOCARDIAL INFARCTION [None]
  - SPINAL FRACTURE [None]
